FAERS Safety Report 13040603 (Version 1)
Quarter: 2016Q4

REPORT INFORMATION
  Report Type: Spontaneous
  Country: US (occurrence: US)
  Receive Date: 20161219
  Receipt Date: 20161219
  Transmission Date: 20170207
  Serious: Yes (Disabling)
  Sender: FDA-Public Use
  Company Number: None

PATIENT
  Age: 48 Year
  Sex: Female
  Weight: 69.7 kg

DRUGS (7)
  1. XIIDRA [Suspect]
     Active Substance: LIFITEGRAST
     Indication: DRY EYE
     Dosage: ?          QUANTITY:1 DROP(S);?
     Route: 047
     Dates: start: 20161106, end: 20161203
  2. LATISSE [Concomitant]
     Active Substance: BIMATOPROST
  3. ACZONE [Concomitant]
     Active Substance: DAPSONE
  4. VITAMIN E [Concomitant]
     Active Substance: .ALPHA.-TOCOPHEROL
  5. TRETINOIN. [Concomitant]
     Active Substance: TRETINOIN
  6. CITALOPRAM [Concomitant]
     Active Substance: CITALOPRAM HYDROBROMIDE
  7. OVACE WASH [Concomitant]

REACTIONS (4)
  - Gastritis [None]
  - Chest pain [None]
  - Cardiac disorder [None]
  - Abdominal discomfort [None]

NARRATIVE: CASE EVENT DATE: 20161121
